FAERS Safety Report 19683700 (Version 7)
Quarter: 2022Q3

REPORT INFORMATION
  Report Type: Spontaneous
  Country: GB (occurrence: GB)
  Receive Date: 20210810
  Receipt Date: 20220803
  Transmission Date: 20221027
  Serious: Yes (Other)
  Sender: FDA-Public Use
  Company Number: GB-EMA-DD-20200914-ABDUL_J-155600

PATIENT
  Sex: Male

DRUGS (20)
  1. ACYCLOVIR [Suspect]
     Active Substance: ACYCLOVIR
     Indication: Product used for unknown indication
     Dosage: 200 MILLIGRAMS (MG)  THERAPY START DATE /THERAPY END DATE ASKED BUT UNKNOWN
     Route: 065
  2. FLUCONAZOLE [Suspect]
     Active Substance: FLUCONAZOLE
     Indication: Product used for unknown indication
     Dosage: 50 MILLIGRAMS (MG), THERAPY START DATE /THERAPY END DATE ASKED BUT UNKNOWN
     Route: 065
  3. REVLIMID [Suspect]
     Active Substance: LENALIDOMIDE
     Indication: Product used for unknown indication
     Dosage: 10 MILLIGRAMS (MG) AS REQUIRED
     Route: 048
  4. REVLIMID [Suspect]
     Active Substance: LENALIDOMIDE
     Dosage: 10 MILLIGRAMS (MG) THERAPY START DATE / THERAPY END DATE ASKED BUT UNKNOWN
     Route: 048
  5. SULFAMETHOXAZOLE [Suspect]
     Active Substance: SULFAMETHOXAZOLE
     Indication: Product used for unknown indication
     Dosage: UNK, THERAPY START DATE /THERAPY END DATE ASKED BUT UNKNOWN VIA INTRAVENOUS (NOT OTHERWISE SPECIFIED
     Route: 042
  6. COTRIMOXAZOLE [Suspect]
     Active Substance: SULFAMETHOXAZOLE\TRIMETHOPRIM
     Indication: Product used for unknown indication
     Dosage: 50 MILLIGRAMS (MG), THERAPY START DATE /THERAPY END DATE ASKED BUT UNKNOWN
     Route: 042
  7. COTRIMOXAZOLE [Suspect]
     Active Substance: SULFAMETHOXAZOLE\TRIMETHOPRIM
     Dosage: 200 MILLIGRAMS (MG), THERAPY START DATE /THERAPY END DATE ASKED BUT UNKNOWN
     Route: 042
  8. IXAZOMIB [Suspect]
     Active Substance: IXAZOMIB
     Indication: Product used for unknown indication
     Dosage: 3 MILLIGRAMS(MG) THERAPY START DATE /THERAPY END DATE ASKED BUT UNKNOWN
     Route: 048
  9. LANSOPRAZOLE [Suspect]
     Active Substance: LANSOPRAZOLE
     Indication: Product used for unknown indication
     Dosage: 30 MILLIGRAM (MG) AS REQUIRED, THERAPY START DATE /THERAPY END DATE ASKED BUT UNKNOWN
     Route: 065
  10. LANSOPRAZOLE [Suspect]
     Active Substance: LANSOPRAZOLE
     Dosage: 30 MILLIGRAM (MG), THERAPY START DATE /THERAPY END DATE ASKED BUT UNKNOWN
     Route: 065
  11. TRIMETHOPRIM [Suspect]
     Active Substance: TRIMETHOPRIM
     Indication: Product used for unknown indication
     Dosage: 50 MILLIGRAMS (MG) AS NECESSARY, REPORTED: THERAPY START DATE /THERAPY END DATE ASKED BUT UNKNOWN VI
     Route: 042
  12. TRIMETHOPRIM [Suspect]
     Active Substance: TRIMETHOPRIM
     Dosage: UNKNOWN DOSE AS REQUIRED, REPORTED: THERAPY START DATE /THERAPY END DATE ASKED BUT UNKNOWN
     Route: 042
  13. TRIMETHOPRIM [Suspect]
     Active Substance: TRIMETHOPRIM
     Dosage: 200 MILLIGRAMS (MG)
     Route: 042
  14. DEXAMETHASONE [Suspect]
     Active Substance: DEXAMETHASONE
     Indication: Product used for unknown indication
     Dosage: 40 MILLIGRAM (MG), THERAPY START DATE /THERAPY END DATE ASKED BUT UNKNOWN
     Route: 065
  15. DEXAMETHASONE [Suspect]
     Active Substance: DEXAMETHASONE
     Dosage: 40 MILLIGRAM (MG) AS REQUIRED, THERAPY START DATE /THERAPY END DATE ASKED BUT UNKNOWN
     Route: 065
  16. DEXAMETHASONE [Suspect]
     Active Substance: DEXAMETHASONE
     Dosage: 40 MILLIGRAMS (MG), THERAPY START DATE /THERAPY END DATE ASKED BUT UNKNOWN
     Route: 048
  17. LENALIDOMIDE [Suspect]
     Active Substance: LENALIDOMIDE
     Indication: Product used for unknown indication
     Dosage: 10 MILLIGRAMS (MG) AS REQUIRED, THERAPY START DATE /THERAPY END DATE ASKED BUT UNKNOWN
     Route: 048
  18. NINLARO [Suspect]
     Active Substance: IXAZOMIB CITRATE
     Indication: Product used for unknown indication
     Dosage: 3 MILLIGRAMS (MG)
     Route: 048
  19. IXAZOMIB CITRATE [Suspect]
     Active Substance: IXAZOMIB CITRATE
     Indication: Product used for unknown indication
     Dosage: 3 MILLIGRAMS (MG) AS REQUIRED, THERAPY START DATE /THERAPY END DATE ASKED BUT UNKNOWN
     Route: 048
  20. DEXAMETHASONE SODIUM PHOSPHATE [Suspect]
     Active Substance: DEXAMETHASONE SODIUM PHOSPHATE
     Indication: Product used for unknown indication
     Dosage: 40 MILLIGRAMS (MG) AS REQUIRED
     Route: 065

REACTIONS (1)
  - Full blood count decreased [Unknown]
